FAERS Safety Report 18343819 (Version 1)
Quarter: 2020Q4

REPORT INFORMATION
  Report Type: Spontaneous
  Country: US (occurrence: US)
  Receive Date: 20201001
  Receipt Date: 20201001
  Transmission Date: 20210114
  Serious: No
  Sender: FDA-Public Use
  Company Number: None

PATIENT
  Age: 67 Year
  Sex: Male
  Weight: 76 kg

DRUGS (2)
  1. XELODA [Suspect]
     Active Substance: CAPECITABINE
     Dates: end: 20200927
  2. COMPAZINE [Concomitant]
     Active Substance: PROCHLORPERAZINE MALEATE

REACTIONS (3)
  - Anaemia [None]
  - Blood bilirubin increased [None]
  - Dyspnoea [None]

NARRATIVE: CASE EVENT DATE: 20200928
